FAERS Safety Report 5343992-9 (Version None)
Quarter: 2007Q2

REPORT INFORMATION
  Report Type: 
  Country: None (occurrence: None)
  Receive Date: 20070604
  Receipt Date: 20070524
  Transmission Date: 20071010
  Serious: Yes (Death, Hospitalization)
  Sender: FDA-Public Use
  Company Number: DE-BAXTER-2006BH008277

PATIENT
  Age: 23 Year
  Sex: Male
  Weight: 54 kg

DRUGS (20)
  1. DIANEAL [Suspect]
     Indication: PERITONEAL DIALYSIS
     Route: 033
     Dates: start: 20050101, end: 20050808
  2. DIANEAL [Suspect]
     Indication: RENAL FAILURE
     Route: 033
     Dates: start: 20050101, end: 20050808
  3. PHYSIOSOL IN PLASTIC CONTAINER [Suspect]
     Indication: PERITONEAL DIALYSIS
     Route: 033
     Dates: start: 20050101, end: 20050808
  4. PHYSIOSOL IN PLASTIC CONTAINER [Suspect]
     Indication: RENAL FAILURE
     Route: 033
     Dates: start: 20050101, end: 20050808
  5. EXTRANEAL [Suspect]
     Indication: PERITONEAL DIALYSIS
     Route: 033
     Dates: start: 20050101, end: 20050808
  6. EXTRANEAL [Suspect]
     Indication: RENAL FAILURE
     Route: 033
     Dates: start: 20050101, end: 20050808
  7. NEPRESOL [Concomitant]
  8. RENAGEL [Concomitant]
  9. AMLODIPINE [Concomitant]
  10. MOXONIDINE [Concomitant]
  11. DREISAVIT [Concomitant]
  12. FERRLECIT /GFR/ [Concomitant]
  13. EPOETIN BETA [Concomitant]
  14. DOXAZOSIN MESYLATE [Concomitant]
  15. CALCIUM CARBONATE [Concomitant]
  16. MICARDIS [Concomitant]
  17. THYRONAJOD [Concomitant]
  18. METOPROLOL SUCCINATE [Concomitant]
  19. MAGNESIUM SULFATE [Concomitant]
  20. BONDIOL [Concomitant]

REACTIONS (6)
  - ASCITES [None]
  - CACHEXIA [None]
  - HYPERTENSION [None]
  - PERITONITIS BACTERIAL [None]
  - PULMONARY OEDEMA [None]
  - SCLEROSING ENCAPSULATING PERITONITIS [None]
